FAERS Safety Report 17992704 (Version 7)
Quarter: 2020Q4

REPORT INFORMATION
  Report Type: Spontaneous
  Country: US (occurrence: US)
  Receive Date: 20200707
  Receipt Date: 20201103
  Transmission Date: 20210113
  Serious: Yes (Hospitalization, Other)
  Sender: FDA-Public Use
  Company Number: NVSC2020US189860

PATIENT
  Sex: Female

DRUGS (1)
  1. ZOLGENSMA [Suspect]
     Active Substance: ONASEMNOGENE ABEPARVOVEC-XIOI
     Indication: SPINAL MUSCULAR ATROPHY
     Dosage: 1 UT, ONCE/SINGLE
     Route: 042
     Dates: start: 20190920

REACTIONS (11)
  - Clostridium difficile infection [Unknown]
  - Pneumonia [Unknown]
  - Heart rate increased [Unknown]
  - Oxygen saturation decreased [Unknown]
  - Rhinovirus infection [Unknown]
  - Hyperhidrosis [Unknown]
  - Dyspnoea [Unknown]
  - Pyrexia [Unknown]
  - Pulse absent [Unknown]
  - Bradycardia [Unknown]
  - Scoliosis [Unknown]
